FAERS Safety Report 6144005-1 (Version None)
Quarter: 2009Q2

REPORT INFORMATION
  Report Type: 
  Country: None (occurrence: None)
  Receive Date: 20090406
  Receipt Date: 20071026
  Transmission Date: 20091009
  Serious: Yes (Death, Hospitalization)
  Sender: FDA-Public Use
  Company Number: US-ASTRAZENECA-2006UW21155

PATIENT
  Age: 14423 Day
  Sex: Female
  Weight: 159.1 kg

DRUGS (22)
  1. SEROQUEL [Suspect]
     Indication: DEPRESSION
     Route: 048
     Dates: start: 20040101, end: 20050101
  2. SEROQUEL [Suspect]
     Route: 048
     Dates: start: 20030731
  3. HUMAN INSULIN [Concomitant]
  4. TOPROL-XL [Concomitant]
  5. NAPROXEN [Concomitant]
  6. EFFEXOR [Concomitant]
  7. CALAN [Concomitant]
  8. LASIX [Concomitant]
  9. SYNTHROID [Concomitant]
  10. AVANDIA [Concomitant]
  11. MAXALT [Concomitant]
  12. ATENOLOL [Concomitant]
  13. TIMOLOL MALEATE [Concomitant]
  14. OXYCODONE HCL [Concomitant]
  15. OSCAL [Concomitant]
  16. METFORMIN HCL [Concomitant]
  17. LEXAPRO [Concomitant]
  18. CYCLOBENZAPRINE [Concomitant]
  19. TIMOPTIC EYE DROP [Concomitant]
  20. POTASS CHL ER [Concomitant]
  21. LIPITOR [Concomitant]
  22. NOVOLOG MIX 70/30 [Concomitant]

REACTIONS (14)
  - BACK PAIN [None]
  - DEATH [None]
  - DIABETES MELLITUS [None]
  - EAR INFECTION [None]
  - GENERALISED OEDEMA [None]
  - HYPERLIPIDAEMIA [None]
  - HYPOAESTHESIA [None]
  - HYPOTHYROIDISM [None]
  - METABOLIC SYNDROME [None]
  - OBESITY [None]
  - OSTEOARTHRITIS [None]
  - VISUAL ACUITY REDUCED [None]
  - WEIGHT INCREASED [None]
  - WOUND DEHISCENCE [None]
